FAERS Safety Report 11540679 (Version 2)
Quarter: 2016Q3

REPORT INFORMATION
  Report Type: Spontaneous
  Country: US (occurrence: US)
  Receive Date: 20150923
  Receipt Date: 20160809
  Transmission Date: 20161109
  Serious: No
  Sender: FDA-Public Use
  Company Number: US-BEH-2014047514

PATIENT
  Age: 52 Year
  Sex: Female
  Weight: 115 kg

DRUGS (47)
  1. PRIVIGEN [Suspect]
     Active Substance: HUMAN IMMUNOGLOBULIN G
     Dosage: 5 GM VIALS
     Route: 042
  2. CYMBALTA [Concomitant]
     Active Substance: DULOXETINE HYDROCHLORIDE
  3. SAVELLA [Concomitant]
     Active Substance: MILNACIPRAN HYDROCHLORIDE
  4. MIRALAX [Concomitant]
     Active Substance: POLYETHYLENE GLYCOL 3350
  5. ASPIRIN. [Concomitant]
     Active Substance: ASPIRIN
  6. PRIVIGEN [Suspect]
     Active Substance: HUMAN IMMUNOGLOBULIN G
     Indication: HYPOGAMMAGLOBULINAEMIA
     Route: 042
  7. DIPHENHYDRAMINE. [Concomitant]
     Active Substance: DIPHENHYDRAMINE
  8. EPIPEN [Concomitant]
     Active Substance: EPINEPHRINE
  9. PRAVACHOL [Concomitant]
     Active Substance: PRAVASTATIN SODIUM
  10. MULTIVITAMIN [Concomitant]
     Active Substance: VITAMINS
  11. TEMOVATE [Concomitant]
     Active Substance: CLOBETASOL PROPIONATE
  12. FLOMAX [Concomitant]
     Active Substance: TAMSULOSIN HYDROCHLORIDE
  13. LIDOCAINE-HC [Concomitant]
  14. LEVOFLOXACIN. [Concomitant]
     Active Substance: LEVOFLOXACIN
  15. AMBIEN [Concomitant]
     Active Substance: ZOLPIDEM TARTRATE
  16. BACLOFEN. [Concomitant]
     Active Substance: BACLOFEN
  17. HYDROCODON ACETAMINOPHEN [Concomitant]
  18. DANTRIUM [Concomitant]
     Active Substance: DANTROLENE SODIUM
  19. FISH OIL [Concomitant]
     Active Substance: FISH OIL
  20. FOLIC ACID. [Concomitant]
     Active Substance: FOLIC ACID
  21. SENNA [Concomitant]
     Active Substance: SENNA LEAF\SENNOSIDES\SENNOSIDES A AND B
  22. KEPPRA [Concomitant]
     Active Substance: LEVETIRACETAM
  23. THALOMID [Concomitant]
     Active Substance: THALIDOMIDE
  24. QVAR [Concomitant]
     Active Substance: BECLOMETHASONE DIPROPIONATE
  25. KLONOPIN [Concomitant]
     Active Substance: CLONAZEPAM
  26. ZITHROMAX [Concomitant]
     Active Substance: AZITHROMYCIN DIHYDRATE
  27. SINGULAIR [Concomitant]
     Active Substance: MONTELUKAST SODIUM
  28. EFFEXOR [Concomitant]
     Active Substance: VENLAFAXINE HYDROCHLORIDE
  29. VALIUM [Concomitant]
     Active Substance: DIAZEPAM
  30. XYLOCAINE [Concomitant]
     Active Substance: LIDOCAINE HYDROCHLORIDE
  31. TYLENOL [Concomitant]
     Active Substance: ACETAMINOPHEN
  32. PRIVIGEN [Suspect]
     Active Substance: HUMAN IMMUNOGLOBULIN G
     Indication: BEHCET^S SYNDROME
     Dosage: 20 GM VIALS
     Route: 042
  33. ERYTHROMYCIN. [Concomitant]
     Active Substance: ERYTHROMYCIN
  34. SODIUM CHLORIDE. [Concomitant]
     Active Substance: SODIUM CHLORIDE
  35. ENBREL [Concomitant]
     Active Substance: ETANERCEPT
  36. LEVOTHYROXINE. [Concomitant]
     Active Substance: LEVOTHYROXINE
  37. PREDNISONE. [Concomitant]
     Active Substance: PREDNISONE
  38. CIPRO [Concomitant]
     Active Substance: CIPROFLOXACIN HYDROCHLORIDE
  39. PRILOSEC [Concomitant]
     Active Substance: OMEPRAZOLE MAGNESIUM
  40. CALCIUM 600+ D TABLET [Concomitant]
  41. BECLOMETHASONE [Concomitant]
     Active Substance: BECLOMETHASONE
  42. NORTRIPTYLIN [Concomitant]
     Active Substance: NORTRIPTYLINE
  43. ACETAMINNOPHEN [Concomitant]
  44. L-M-X [Concomitant]
  45. ZOFRAN [Concomitant]
     Active Substance: ONDANSETRON HYDROCHLORIDE
  46. FLONASE [Concomitant]
     Active Substance: FLUTICASONE PROPIONATE
  47. ALBUTEROL. [Concomitant]
     Active Substance: ALBUTEROL

REACTIONS (1)
  - Urinary tract infection [Unknown]

NARRATIVE: CASE EVENT DATE: 20141216
